FAERS Safety Report 5830341-2 (Version None)
Quarter: 2008Q3

REPORT INFORMATION
  Report Type: 
  Country: None (occurrence: None)
  Receive Date: 20080801
  Receipt Date: 20080723
  Transmission Date: 20090109
  Serious: Yes (Death)
  Sender: FDA-Public Use
  Company Number: JP-ABBOTT-08P-087-0465367-00

PATIENT
  Age: 71 Year
  Sex: Male

DRUGS (3)
  1. LEUPROLIDE ACETATE [Suspect]
     Indication: PROSTATE CANCER STAGE II
     Route: 058
     Dates: start: 20061201, end: 20080204
  2. LEUPROLIDE ACETATE [Suspect]
     Route: 058
     Dates: start: 20050617, end: 20061102
  3. BICALUTAMIDE [Concomitant]
     Indication: PROSTATE CANCER STAGE II
     Route: 048
     Dates: end: 20080201

REACTIONS (1)
  - OESOPHAGEAL CARCINOMA [None]
